FAERS Safety Report 5711408-6 (Version None)
Quarter: 2008Q2

REPORT INFORMATION
  Report Type: 
  Country: None (occurrence: None)
  Receive Date: 20080418
  Receipt Date: 20080418
  Transmission Date: 20081010
  Serious: Yes (Hospitalization)
  Sender: FDA-Public Use
  Company Number: None

PATIENT
  Sex: Male
  Weight: 104.7 kg

DRUGS (4)
  1. CYCLOPHOSPHAMIDE [Suspect]
     Dosage: 5640 MG
  2. METHOTREXATE [Suspect]
     Dosage: 31.8 MG
  3. TACROLIMUS [Suspect]
     Dosage: 22.54 MG
  4. THIOTEPA [Suspect]
     Dosage: 940 MG

REACTIONS (13)
  - ACUTE RESPIRATORY DISTRESS SYNDROME [None]
  - ASCITES [None]
  - ASPERGILLOSIS [None]
  - DIALYSIS [None]
  - ENTEROBACTER INFECTION [None]
  - HAEMODIALYSIS [None]
  - HYPOTENSION [None]
  - LYMPHOCYTIC LEUKAEMIA [None]
  - MULTI-ORGAN FAILURE [None]
  - PULMONARY OEDEMA [None]
  - RENAL FAILURE [None]
  - RESPIRATORY FAILURE [None]
  - VENOOCCLUSIVE DISEASE [None]
